FAERS Safety Report 6552589-4 (Version None)
Quarter: 2010Q1

REPORT INFORMATION
  Report Type: 
  Country: None (occurrence: None)
  Receive Date: 20100126
  Receipt Date: 20100118
  Transmission Date: 20100710
  Serious: Yes (Hospitalization, Other)
  Sender: FDA-Public Use
  Company Number: DE-GENENTECH-296802

PATIENT
  Sex: Female
  Weight: 70 kg

DRUGS (2)
  1. MABTHERA [Suspect]
     Indication: NON-HODGKIN'S LYMPHOMA
     Dosage: 630 MG, 1/MONTH
     Route: 042
     Dates: start: 20091110, end: 20091231
  2. BENDAMUSTINE [Concomitant]
     Indication: NON-HODGKIN'S LYMPHOMA
     Dosage: 150 MG, 2/MONTH
     Route: 042
     Dates: start: 20091110, end: 20091231

REACTIONS (2)
  - CRYOGLOBULINAEMIA [None]
  - LEUKOCYTOCLASTIC VASCULITIS [None]
